FAERS Safety Report 4349310-7 (Version None)
Quarter: 2004Q2

REPORT INFORMATION
  Report Type: 
  Country: None (occurrence: None)
  Receive Date: 20040428
  Receipt Date: 20020814
  Transmission Date: 20050107
  Serious: Yes (Hospitalization)
  Sender: FDA-Public Use
  Company Number: US-BRISTOL-MYERS SQUIBB COMPANY-11997913

PATIENT
  Age: 19 Year
  Sex: Female

DRUGS (4)
  1. BMS224818 [Concomitant]
     Dosage: RE-ALLOCATION DATE: 25-MAY-2002
     Route: 042
     Dates: start: 20020301
  2. CELLCEPT [Suspect]
     Dates: start: 20020301
  3. PREDNISONE [Suspect]
     Dates: start: 20020303
  4. BASILIXIMAB [Suspect]

REACTIONS (4)
  - ADENOVIRUS INFECTION [None]
  - CULTURE POSITIVE [None]
  - CYTOMEGALOVIRUS COLITIS [None]
  - PARVOVIRUS INFECTION [None]
